FAERS Safety Report 7577957-3 (Version None)
Quarter: 2011Q2

REPORT INFORMATION
  Report Type: 
  Country: None (occurrence: None)
  Receive Date: 20110628
  Receipt Date: 20110617
  Transmission Date: 20111010
  Serious: No
  Sender: FDA-Public Use
  Company Number: GB-ROCHE-784246

PATIENT
  Sex: Female

DRUGS (1)
  1. ACCUTANE [Suspect]
     Route: 065
     Dates: start: 20090401, end: 20110412

REACTIONS (2)
  - NO ADVERSE EVENT [None]
  - PREGNANCY [None]
